FAERS Safety Report 4899912-4 (Version None)
Quarter: 2006Q1

REPORT INFORMATION
  Report Type: 
  Country: None (occurrence: None)
  Receive Date: 20060118
  Receipt Date: 20050802
  Transmission Date: 20060701
  Serious: No
  Sender: FDA-Public Use
  Company Number: 2005001021

PATIENT
  Age: 72 Year
  Sex: Female
  Weight: 48.0813 kg

DRUGS (6)
  1. TARCEVA [Suspect]
     Indication: NON-SMALL CELL LUNG CANCER
     Dosage: 150 MG (QD), ORAL
     Route: 048
     Dates: start: 20050521
  2. TARCEVA [Suspect]
     Dosage: 75 MG (QD), ORAL
     Route: 048
  3. FOSAMAX [Concomitant]
  4. WARFARIN SODIUM [Concomitant]
  5. MULTIVITAMIN [Concomitant]
  6. TYLOX (TYLOX) [Concomitant]

REACTIONS (2)
  - EPISTAXIS [None]
  - RASH [None]
